FAERS Safety Report 14241010 (Version 6)
Quarter: 2019Q1

REPORT INFORMATION
  Report Type: Spontaneous
  Country: JP (occurrence: JP)
  Receive Date: 20171130
  Receipt Date: 20190228
  Transmission Date: 20190417
  Serious: Yes (Life-Threatening)
  Sender: FDA-Public Use
  Company Number: PHJP2017JP034606

PATIENT
  Age: 58 Year
  Sex: Female
  Weight: 37.8 kg

DRUGS (11)
  1. NEORAL [Suspect]
     Active Substance: CYCLOSPORINE
     Dosage: 90 MG, UNK
     Route: 048
     Dates: start: 20161230, end: 20161230
  2. ANTITHYMOCYTE IMMUNOGLOBULIN [Suspect]
     Active Substance: THYMOCYTE IMMUNE GLOBULIN NOS
     Indication: APLASTIC ANAEMIA
     Dosage: 150 MG, QD
     Route: 065
     Dates: start: 20161220, end: 20161224
  3. VFEND [Suspect]
     Active Substance: VORICONAZOLE
     Indication: INFECTION PROPHYLAXIS
     Dosage: 300 MG, BID
     Route: 048
     Dates: start: 20161220, end: 20161220
  4. VFEND [Suspect]
     Active Substance: VORICONAZOLE
     Dosage: 150 MG, BID
     Route: 048
     Dates: start: 20161221, end: 20170102
  5. NEORAL [Suspect]
     Active Substance: CYCLOSPORINE
     Dosage: 180 MG, UNK
     Route: 048
     Dates: start: 20161229, end: 20161229
  6. NEORAL [Suspect]
     Active Substance: CYCLOSPORINE
     Dosage: 150 MG, UNK
     Route: 048
     Dates: start: 20161227, end: 20161227
  7. NEORAL [Suspect]
     Active Substance: CYCLOSPORINE
     Dosage: UNK
     Route: 048
     Dates: start: 20170724
  8. METHYLPREDNISOLONE. [Concomitant]
     Active Substance: METHYLPREDNISOLONE
     Indication: APLASTIC ANAEMIA
     Dosage: 125 MG, QD
     Route: 065
     Dates: start: 20161220, end: 20161224
  9. NEORAL [Suspect]
     Active Substance: CYCLOSPORINE
     Indication: APLASTIC ANAEMIA
     Dosage: 60 MG, BID
     Route: 048
     Dates: start: 20161220, end: 20161225
  10. NEORAL [Suspect]
     Active Substance: CYCLOSPORINE
     Dosage: 135 MG, UNK
     Route: 048
     Dates: start: 20161226, end: 20161226
  11. NEORAL [Suspect]
     Active Substance: CYCLOSPORINE
     Dosage: 165 MG, UNK
     Route: 048
     Dates: start: 20161228, end: 20161228

REACTIONS (9)
  - Visual field defect [Recovering/Resolving]
  - Dizziness [Recovering/Resolving]
  - Thunderclap headache [Recovered/Resolved]
  - Colour blindness [Recovering/Resolving]
  - Cerebral infarction [Recovering/Resolving]
  - Product use in unapproved indication [Unknown]
  - Reversible cerebral vasoconstriction syndrome [Recovering/Resolving]
  - Cerebral vasoconstriction [Recovering/Resolving]
  - Hypertension [Recovered/Resolved]

NARRATIVE: CASE EVENT DATE: 20161224
